FAERS Safety Report 4702280-1 (Version None)
Quarter: 2005Q2

REPORT INFORMATION
  Report Type: 
  Country: None (occurrence: None)
  Receive Date: 20050628
  Receipt Date: 20050628
  Transmission Date: 20051028
  Serious: Yes (Other)
  Sender: FDA-Public Use
  Company Number: None

PATIENT
  Age: 26 Year
  Sex: Male
  Weight: 115.6672 kg

DRUGS (1)
  1. EQUATE EYE DROPS [Suspect]
     Dates: start: 20050602, end: 20050602

REACTIONS (3)
  - ERYTHEMA [None]
  - LOCAL SWELLING [None]
  - SWELLING [None]
